FAERS Safety Report 25989567 (Version 2)
Quarter: 2025Q4

REPORT INFORMATION
  Report Type: Spontaneous
  Country: JP (occurrence: JP)
  Receive Date: 20251103
  Receipt Date: 20251117
  Transmission Date: 20260118
  Serious: Yes (Other)
  Sender: MACLEODS
  Company Number: JP-MLMSERVICE-20251017-PI678404-00246-4

PATIENT

DRUGS (6)
  1. OLANZAPINE [Suspect]
     Active Substance: OLANZAPINE
     Indication: Schizophrenia
     Route: 048
  2. OLANZAPINE [Suspect]
     Active Substance: OLANZAPINE
     Route: 048
  3. PALIPERIDONE [Suspect]
     Active Substance: PALIPERIDONE
     Indication: Schizophrenia
     Dosage: LONG-ACTING INJECTION (LAI)
     Route: 030
  4. PALIPERIDONE [Suspect]
     Active Substance: PALIPERIDONE
     Dosage: 100 MG DOSE WAS ADMINISTERED ONE WEEK AFTER THE 150 MG INJECTION; LAI
     Route: 030
  5. PALIPERIDONE [Suspect]
     Active Substance: PALIPERIDONE
     Dosage: 3 WEEKS AFTER DISCHARGE, THE SECOND DOSELAI AT 150 MG WAS ADMINISTERED
     Route: 030
  6. GUANFACINE [Suspect]
     Active Substance: GUANFACINE
     Indication: Schizophrenia
     Dosage: 1MGX2(TOTAL  2MG)
     Route: 048

REACTIONS (4)
  - Catatonia [Recovered/Resolved]
  - Somnolence [Recovered/Resolved]
  - Muscle rigidity [Unknown]
  - Extrapyramidal disorder [Unknown]
